FAERS Safety Report 15644049 (Version 2)
Quarter: 2019Q4

REPORT INFORMATION
  Report Type: Spontaneous
  Country: FR (occurrence: FR)
  Receive Date: 20181121
  Receipt Date: 20191028
  Transmission Date: 20200122
  Serious: Yes (Hospitalization)
  Sender: FDA-Public Use
  Company Number: FR-PFIZER INC-2018475204

PATIENT
  Age: 46 Year
  Sex: Female
  Weight: 124 kg

DRUGS (2)
  1. CLINDAMYCIN. [Concomitant]
     Active Substance: CLINDAMYCIN
     Indication: DERMO-HYPODERMITIS
     Dosage: UNK, (NP)
     Route: 065
     Dates: start: 20180802, end: 20180806
  2. TAZOCILLINE [Suspect]
     Active Substance: PIPERACILLIN SODIUM\TAZOBACTAM SODIUM
     Indication: DERMO-HYPODERMITIS
     Dosage: 16 G, 1X/DAY
     Route: 042
     Dates: start: 20180731, end: 20180810

REACTIONS (3)
  - Vasculitis [Recovering/Resolving]
  - Vascular purpura [Recovering/Resolving]
  - Vasculitis necrotising [Recovering/Resolving]

NARRATIVE: CASE EVENT DATE: 20180803
